FAERS Safety Report 19874508 (Version 5)
Quarter: 2022Q1

REPORT INFORMATION
  Report Type: Report from Study
  Country: AU (occurrence: AU)
  Receive Date: 20210923
  Receipt Date: 20220104
  Transmission Date: 20220423
  Serious: Yes (Hospitalization)
  Sender: FDA-Public Use
  Company Number: AU-GLAXOSMITHKLINE-AU2021GSK194125

PATIENT
  Age: 77 Year
  Sex: Male

DRUGS (24)
  1. BELANTAMAB MAFODOTIN [Suspect]
     Active Substance: BELANTAMAB MAFODOTIN
     Indication: Plasma cell myeloma
     Dosage: 2.5 MG/KG, CYC, 1 DAY OF EVERY 21 DAY CYCLE
     Route: 042
     Dates: start: 20210120, end: 20210909
  2. ASPIRIN [Concomitant]
     Active Substance: ASPIRIN
     Indication: Prophylaxis
     Dosage: 100 MG, QD
     Route: 048
     Dates: start: 2014
  3. ASPIRIN [Concomitant]
     Active Substance: ASPIRIN
     Dosage: 100 MG, QD
     Route: 048
     Dates: start: 20210904
  4. PREGABALIN [Concomitant]
     Active Substance: PREGABALIN
     Indication: Pain
     Dosage: 150 MG, BID
     Route: 048
     Dates: start: 2014
  5. ROSUVASTATIN [Concomitant]
     Active Substance: ROSUVASTATIN
     Indication: Metabolic disorder prophylaxis
     Dosage: 5 MG, QD
     Route: 048
     Dates: start: 2010
  6. CALCIUM CARBONATE [Concomitant]
     Active Substance: CALCIUM CARBONATE
     Indication: Mineral supplementation
     Dosage: 1500 MG, QD
     Route: 048
     Dates: start: 2014
  7. VALACYCLOVIR HYDROCHLORIDE [Concomitant]
     Active Substance: VALACYCLOVIR HYDROCHLORIDE
     Indication: Prophylaxis
     Dosage: 500 MG, QD
     Route: 048
     Dates: start: 2014
  8. SULFAMETHOXAZOLE\TRIMETHOPRIM [Concomitant]
     Active Substance: SULFAMETHOXAZOLE\TRIMETHOPRIM
     Indication: Prophylaxis
     Dosage: 1 TABLET, 3 TIMES PER WEEK
     Route: 048
     Dates: start: 2014
  9. OMEPRAZOLE [Concomitant]
     Active Substance: OMEPRAZOLE
     Indication: Congenital multiplex arthrogryposis
     Dosage: 20 MG, QD
     Route: 048
     Dates: start: 2017
  10. PREDNISONE [Concomitant]
     Active Substance: PREDNISONE
     Indication: Lower respiratory tract infection
     Dosage: 50 MG, QD
     Route: 048
     Dates: start: 20210728, end: 20210802
  11. BUDESONIDE\FORMOTEROL [Concomitant]
     Active Substance: BUDESONIDE\FORMOTEROL
     Indication: Lower respiratory tract infection
     Dosage: 1 PUFF(S), PRN
     Route: 055
     Dates: start: 20210728
  12. AMOXICILLIN\CLAVULANIC ACID [Concomitant]
     Active Substance: AMOXICILLIN\CLAVULANIC ACID
     Indication: Lower respiratory tract infection
     Dosage: 1 TABLET, BID
     Route: 048
     Dates: start: 20210728, end: 20210802
  13. PREDNISOLONE [Concomitant]
     Active Substance: PREDNISOLONE
     Indication: Lower respiratory tract infection
     Dosage: 25 MG, QD
     Route: 048
     Dates: start: 20210803, end: 20210810
  14. PREDNISOLONE [Concomitant]
     Active Substance: PREDNISOLONE
     Dosage: 12.5 MG, QD
     Route: 048
     Dates: start: 20210811, end: 20210818
  15. OXYCODONE HYDROCHLORIDE [Concomitant]
     Active Substance: OXYCODONE HYDROCHLORIDE
     Indication: Chest injury
     Dosage: 5 MG, PRN
     Route: 048
     Dates: start: 20210823, end: 20210902
  16. ACETAMINOPHEN [Concomitant]
     Active Substance: ACETAMINOPHEN
     Indication: Chest injury
     Dosage: 1 G, PRN
     Route: 048
     Dates: start: 20210823, end: 20210902
  17. ROXITHROMYCIN [Concomitant]
     Active Substance: ROXITHROMYCIN
     Indication: Lower respiratory tract infection
     Dosage: 300 UNK, QD
     Route: 048
     Dates: start: 20210707, end: 20210727
  18. NALOXONE HYDROCHLORIDE\OXYCODONE HYDROCHLORIDE [Concomitant]
     Active Substance: NALOXONE HYDROCHLORIDE\OXYCODONE HYDROCHLORIDE
     Indication: Chest injury
     Dosage: 5/2.5 MG PRN
     Route: 048
     Dates: start: 20210826, end: 20210902
  19. AMOXICILLIN\CLAVULANATE POTASSIUM [Concomitant]
     Active Substance: AMOXICILLIN\CLAVULANATE POTASSIUM
     Indication: Lower respiratory tract infection
     Dosage: 875/125 MG, BID
     Route: 048
     Dates: start: 20210826, end: 20210831
  20. AMOXICILLIN\CLAVULANATE POTASSIUM [Concomitant]
     Active Substance: AMOXICILLIN\CLAVULANATE POTASSIUM
     Dosage: 875/125 MG, BID
     Route: 048
     Dates: start: 20210902
  21. FUROSEMIDE [Concomitant]
     Active Substance: FUROSEMIDE
     Indication: Prophylaxis
     Dosage: 20 MG, QD
     Route: 048
     Dates: start: 20210830, end: 20210902
  22. COVID-19 VACCINE NOS [Concomitant]
     Active Substance: COVID-19 VACCINE NOS
     Indication: COVID-19 prophylaxis
     Dosage: 0.5 ML, ONCE
     Route: 030
     Dates: start: 20210510, end: 20210510
  23. COVID-19 VACCINE NOS [Concomitant]
     Active Substance: COVID-19 VACCINE NOS
     Dosage: 0.5 ML, ONCE
     Route: 030
     Dates: start: 20210812, end: 20210812
  24. COVID-19 VACCINE NOS [Concomitant]
     Active Substance: COVID-19 VACCINE NOS
     Dosage: 0.5 ML, ONCE
     Route: 030
     Dates: start: 20211115, end: 20211115

REACTIONS (1)
  - Pneumonitis [Recovered/Resolved]

NARRATIVE: CASE EVENT DATE: 20210909
